FAERS Safety Report 25982232 (Version 1)
Quarter: 2025Q4

REPORT INFORMATION
  Report Type: Spontaneous
  Country: JP (occurrence: JP)
  Receive Date: 20251031
  Receipt Date: 20251031
  Transmission Date: 20260117
  Serious: Yes (Other)
  Sender: SANDOZ
  Company Number: None

PATIENT
  Age: 79 Year
  Sex: Male

DRUGS (1)
  1. METHOTREXATE [Suspect]
     Active Substance: METHOTREXATE
     Indication: Rheumatoid arthritis
     Dosage: SINCE 57 YEARS OLD
     Route: 065

REACTIONS (2)
  - Diffuse large B-cell lymphoma [Recovered/Resolved]
  - Intracardiac mass [Recovered/Resolved]
